FAERS Safety Report 15286216 (Version 1)
Quarter: 2018Q4

REPORT INFORMATION
  Report Type: Spontaneous
  Country: US (occurrence: US)
  Receive Date: 20180816
  Receipt Date: 20180816
  Transmission Date: 20190204
  Serious: No
  Sender: FDA-Public Use
  Company Number: US-ACLARIS THERAPEUTICS-2018US004148

PATIENT
  Age: 81 Year
  Sex: Female

DRUGS (1)
  1. ESKATA [Suspect]
     Active Substance: HYDROGEN PEROXIDE
     Indication: SEBORRHOEIC KERATOSIS
     Dosage: 0.7 ML, SINGLE
     Route: 061
     Dates: start: 20180417

REACTIONS (1)
  - Application site vesicles [Recovered/Resolved]

NARRATIVE: CASE EVENT DATE: 20180417
